FAERS Safety Report 4556757-2 (Version None)
Quarter: 2005Q1

REPORT INFORMATION
  Report Type: 
  Country: None (occurrence: None)
  Receive Date: 20050120
  Receipt Date: 20041208
  Transmission Date: 20050727
  Serious: Yes (Death, Life-Threatening)
  Sender: FDA-Public Use
  Company Number: 200413834JP

PATIENT
  Age: 84 Year
  Sex: Female

DRUGS (6)
  1. AMARYL [Suspect]
     Indication: DIABETES MELLITUS
     Route: 048
     Dates: start: 20030612, end: 20040526
  2. CALVAN [Concomitant]
     Indication: HYPERTENSION
     Route: 048
     Dates: start: 20030612, end: 20040526
  3. JUVELA NICOTINATE [Concomitant]
     Indication: HYPERTENSION
     Route: 048
     Dates: start: 20030612, end: 20040526
  4. ALUSA [Concomitant]
     Indication: GASTRIC ULCER
     Route: 048
     Dates: start: 20030612, end: 20040526
  5. NIKAMEAL [Concomitant]
     Indication: HYPERTENSION
     Route: 048
     Dates: start: 20030612, end: 20040526
  6. LIPITOR [Concomitant]
     Indication: HYPERLIPIDAEMIA
     Route: 048
     Dates: start: 20030612, end: 20040526

REACTIONS (8)
  - BLISTER [None]
  - CARDIAC FAILURE [None]
  - CARDIOMEGALY [None]
  - COMA [None]
  - DEHYDRATION [None]
  - HYPOGLYCAEMIA [None]
  - PULMONARY CONGESTION [None]
  - RESPIRATORY DISORDER [None]
